FAERS Safety Report 9805030 (Version 2)
Quarter: 2014Q1

REPORT INFORMATION
  Report Type: Report from Study
  Country: BR (occurrence: BR)
  Receive Date: 20140109
  Receipt Date: 20140109
  Transmission Date: 20141002
  Serious: Yes (Death, Hospitalization, Other)
  Sender: FDA-Public Use
  Company Number: BR-ROCHE-751554

PATIENT
  Age: 65 Year
  Sex: Male
  Weight: 98 kg

DRUGS (3)
  1. RITUXIMAB [Suspect]
     Indication: RHEUMATOID ARTHRITIS
     Dosage: DOSE: 10 MG/ML. FORM: INFUSION
     Route: 042
     Dates: start: 20101201, end: 20101215
  2. RITUXIMAB [Suspect]
     Dosage: LAST MABTHERA INFUSION FOR RHEUMATOID ARTHRITIS IN OC/T2013
     Route: 042
  3. ARADOIS [Concomitant]

REACTIONS (8)
  - Dyspnoea [Fatal]
  - Cardiac arrest [Fatal]
  - Wound necrosis [Recovering/Resolving]
  - Musculoskeletal disorder [Unknown]
  - Laceration [Recovering/Resolving]
  - Local swelling [Recovered/Resolved]
  - Local swelling [Unknown]
  - Joint swelling [Unknown]
